FAERS Safety Report 23328506 (Version 1)
Quarter: 2023Q4

REPORT INFORMATION
  Report Type: Spontaneous
  Country: DE (occurrence: DE)
  Receive Date: 20231221
  Receipt Date: 20231221
  Transmission Date: 20240109
  Serious: Yes (Other)
  Sender: FDA-Public Use
  Company Number: DE-ELI_LILLY_AND_COMPANY-DE202312010964

PATIENT
  Age: 41 Year
  Sex: Male

DRUGS (1)
  1. IXEKIZUMAB [Suspect]
     Active Substance: IXEKIZUMAB
     Indication: Psoriatic arthropathy
     Dosage: 80 MG, MONTHLY (1/M)
     Route: 065

REACTIONS (8)
  - Large intestine infection [Recovering/Resolving]
  - Autoimmune colitis [Recovering/Resolving]
  - Psoriasis [Recovering/Resolving]
  - Spinal pain [Recovering/Resolving]
  - Arthralgia [Recovering/Resolving]
  - Enteritis [Recovering/Resolving]
  - Gastric polyps [Recovering/Resolving]
  - Gastritis [Recovering/Resolving]
